FAERS Safety Report 25429753 (Version 7)
Quarter: 2025Q3

REPORT INFORMATION
  Report Type: Spontaneous
  Country: EU (occurrence: EU)
  Receive Date: 20250612
  Receipt Date: 20250926
  Transmission Date: 20251020
  Serious: Yes (Other)
  Sender: ALEXION PHARMACEUTICALS
  Company Number: EU-002147023-NVSC2024FR168474

PATIENT
  Sex: Female

DRUGS (5)
  1. FASLODEX [Suspect]
     Active Substance: FULVESTRANT
     Indication: Product used for unknown indication
     Route: 065
  2. FASLODEX [Suspect]
     Active Substance: FULVESTRANT
  3. RIBOCICLIB [Suspect]
     Active Substance: RIBOCICLIB
     Indication: Hormone receptor positive HER2 negative breast cancer
     Dates: start: 20240704, end: 20240731
  4. RIBOCICLIB [Suspect]
     Active Substance: RIBOCICLIB
     Dates: start: 20240808, end: 20250424
  5. RIBOCICLIB [Suspect]
     Active Substance: RIBOCICLIB

REACTIONS (21)
  - Erysipelas [Recovering/Resolving]
  - Erythema [Recovering/Resolving]
  - Oedema peripheral [Recovered/Resolved]
  - Neutrophil count decreased [Recovered/Resolved]
  - Nausea [Recovered/Resolved]
  - Asthenia [Recovering/Resolving]
  - Lacrimation increased [Recovered/Resolved]
  - Muscle spasms [Recovered/Resolved]
  - Chills [Recovered/Resolved]
  - Feeling cold [Recovered/Resolved]
  - Bronchitis [Recovered/Resolved]
  - Cough [Recovered/Resolved]
  - Dyspnoea exertional [Recovered/Resolved]
  - Pain in extremity [Recovered/Resolved]
  - Arthralgia [Recovered/Resolved]
  - Paraesthesia oral [Recovered/Resolved]
  - Sciatica [Not Recovered/Not Resolved]
  - Tooth infection [Recovered/Resolved]
  - Vomiting [Recovered/Resolved]
  - Gastroenteritis [Recovered/Resolved]
  - Somnolence [Recovered/Resolved]

NARRATIVE: CASE EVENT DATE: 20240705
